FAERS Safety Report 26218741 (Version 1)
Quarter: 2025Q4

REPORT INFORMATION
  Report Type: Spontaneous
  Country: IL (occurrence: IL)
  Receive Date: 20251231
  Receipt Date: 20251231
  Transmission Date: 20260118
  Serious: Yes (Other)
  Sender: NOVARTIS
  Company Number: IL-002147023-NVSC2025IL198302

PATIENT
  Age: 30 Year
  Sex: Female

DRUGS (5)
  1. CYCLOSPORINE [Suspect]
     Active Substance: CYCLOSPORINE
     Indication: Pyoderma gangrenosum
     Dosage: UNK UNK, BID (225 MG/DAY: 100 MG MORNING + 125 MG IN THE EVENING (AT DOSAGE OF 4 MG/KG))
     Route: 065
  2. CYCLOSPORINE [Suspect]
     Active Substance: CYCLOSPORINE
     Dosage: 175 MG, QD
     Route: 065
  3. TAZOCIN [Concomitant]
     Indication: Product used for unknown indication
     Dosage: UNK (4.5 MG ?3 FOR 13 DAYS)
     Route: 065
  4. LYRICA [Concomitant]
     Active Substance: PREGABALIN
     Indication: Product used for unknown indication
     Dosage: UNK
     Route: 065
  5. METAMIZOLE [Concomitant]
     Active Substance: METAMIZOLE
     Indication: Product used for unknown indication
     Dosage: UNK
     Route: 065

REACTIONS (13)
  - Pyoderma gangrenosum [Not Recovered/Not Resolved]
  - Psoriatic arthropathy [Unknown]
  - Leukopenia [Unknown]
  - Aspiration joint [Unknown]
  - Psoriasis [Unknown]
  - Rash [Recovered/Resolved]
  - Skin plaque [Unknown]
  - Cyst [Unknown]
  - Papule [Unknown]
  - Hidradenitis [Unknown]
  - Condition aggravated [Unknown]
  - Acne [Unknown]
  - Off label use [Unknown]
